FAERS Safety Report 9303430 (Version 1)
Quarter: 2013Q2

REPORT INFORMATION
  Report Type: Spontaneous
  Country: CA (occurrence: CA)
  Receive Date: 20130522
  Receipt Date: 20130522
  Transmission Date: 20140414
  Serious: Yes (Death)
  Sender: FDA-Public Use
  Company Number: CA-ELI_LILLY_AND_COMPANY-CA201305001992

PATIENT
  Age: 65 Year
  Sex: Female

DRUGS (5)
  1. FORTEO [Suspect]
     Indication: OSTEOPOROSIS
     Dosage: 20 UG, QD
     Route: 058
     Dates: start: 20130424
  2. CALCIUM [Concomitant]
     Dosage: UNK, UNKNOWN
  3. MAGNESIUM [Concomitant]
     Dosage: UNK, UNKNOWN
  4. VITAMIN D [Concomitant]
     Dosage: UNK, UNKNOWN
  5. DILANTIN [Concomitant]
     Dosage: UNK, UNKNOWN

REACTIONS (1)
  - Death [Fatal]
